FAERS Safety Report 5482952-4 (Version None)
Quarter: 2007Q4

REPORT INFORMATION
  Report Type: 
  Country: None (occurrence: None)
  Receive Date: 20071011
  Receipt Date: 20070927
  Transmission Date: 20080405
  Serious: No
  Sender: FDA-Public Use
  Company Number: US-BOEHRINGER INGELHEIM PHARMACEUTICALS, INC.-2007-BP-21821BP

PATIENT
  Sex: Female

DRUGS (5)
  1. MICARDIS HCT [Suspect]
     Indication: HYPERTENSION
     Route: 048
     Dates: start: 20050101
  2. COREG [Concomitant]
     Indication: BLOOD PRESSURE INCREASED
     Route: 048
  3. TEKTURNA [Concomitant]
     Indication: BLOOD PRESSURE INCREASED
     Route: 048
  4. ASPIRIN [Concomitant]
     Route: 048
  5. PLAVIX [Concomitant]
     Route: 048

REACTIONS (1)
  - DRUG INEFFECTIVE [None]
